FAERS Safety Report 13129849 (Version 2)
Quarter: 2017Q4

REPORT INFORMATION
  Report Type: Spontaneous
  Country: FR (occurrence: FR)
  Receive Date: 20170119
  Receipt Date: 20171221
  Transmission Date: 20180320
  Serious: Yes (Hospitalization)
  Sender: FDA-Public Use
  Company Number: PHHY2017FR005812

PATIENT
  Age: 50 Year
  Sex: Female
  Weight: 56 kg

DRUGS (9)
  1. VELCADE [Suspect]
     Active Substance: BORTEZOMIB
     Indication: PLASMA CELL MYELOMA
     Dosage: 2 MG, QD
     Route: 058
     Dates: start: 20161128, end: 20161205
  2. DEXAMETHASONE. [Suspect]
     Active Substance: DEXAMETHASONE
     Indication: PLASMA CELL MYELOMA
     Dosage: 20 MG, CYCLIC (D1, D2, D8 AND D15)
     Route: 048
     Dates: start: 20161128, end: 20161205
  3. ZOPHREN [Suspect]
     Active Substance: ONDANSETRON
     Indication: PROPHYLAXIS OF NAUSEA AND VOMITING
     Dosage: 8 MG, QD UNK UNK, CYCLIC
     Route: 042
     Dates: start: 20161128, end: 20161129
  4. VELCADE [Suspect]
     Active Substance: BORTEZOMIB
     Dosage: 2 MG, CYCLIC (D1, D8 AND D15)
     Route: 058
  5. VELCADE [Suspect]
     Active Substance: BORTEZOMIB
     Dosage: 2 MG, CYCLIC (D1, D8 AND D15) (C6D1,D2)
     Route: 058
     Dates: start: 20161128, end: 20161205
  6. LEVACT [Suspect]
     Active Substance: BENDAMUSTINE HYDROCHLORIDE
     Indication: PLASMA CELL MYELOMA
     Dosage: 2.5 MG/ML, UNK
     Route: 042
     Dates: start: 20161128, end: 20161129
  7. LEVACT [Suspect]
     Active Substance: BENDAMUSTINE HYDROCHLORIDE
     Dosage: 186 MG, CYCLIC (D1 AND D2) (C6D1)
     Route: 042
     Dates: start: 20161128, end: 20161129
  8. DUROGESIC [Concomitant]
     Active Substance: FENTANYL
     Indication: BONE PAIN
     Dosage: UG/H
     Route: 062
  9. LEVACT [Suspect]
     Active Substance: BENDAMUSTINE HYDROCHLORIDE
     Dosage: 186 MG, CYCLIC (D1 AND D2)
     Route: 042

REACTIONS (10)
  - Speech disorder [Recovered/Resolved]
  - Hemianopia homonymous [Unknown]
  - Product use issue [Unknown]
  - Ventricular extrasystoles [Unknown]
  - Hemiparesis [Recovered/Resolved]
  - Hypokalaemia [Unknown]
  - Confusional state [Recovered/Resolved]
  - Cerebral vasoconstriction [Recovered/Resolved]
  - White blood cell count decreased [Unknown]
  - Pyrexia [Unknown]

NARRATIVE: CASE EVENT DATE: 20161212
